FAERS Safety Report 17480392 (Version 16)
Quarter: 2021Q1

REPORT INFORMATION
  Report Type: Report from Study
  Country: None (occurrence: NL)
  Receive Date: 20200228
  Receipt Date: 20210310
  Transmission Date: 20210419
  Serious: Yes (Other)
  Sender: FDA-Public Use
  Company Number: NL-ABBVIE-20K-114-3288789-00

PATIENT
  Age: 68 Year
  Sex: Female

DRUGS (20)
  1. ROPINIROLE. [Concomitant]
     Active Substance: ROPINIROLE
     Indication: PARKINSON^S DISEASE
  2. ROPINIROLE. [Concomitant]
     Active Substance: ROPINIROLE
  3. CLOZAPINE. [Concomitant]
     Active Substance: CLOZAPINE
  4. DUODOPA [Suspect]
     Active Substance: CARBIDOPA\LEVODOPA
     Dosage: MD 3.8ML; CD 2.7ML/H, ED 0.7ML
     Route: 050
  5. REQUIP [Concomitant]
     Active Substance: ROPINIROLE HYDROCHLORIDE
     Indication: PARKINSON^S DISEASE
     Dosage: 6 MG
  6. CLONAZEPAM. [Concomitant]
     Active Substance: CLONAZEPAM
     Indication: PRODUCT USED FOR UNKNOWN INDICATION
     Dosage: FOR THE NIGHT
  7. DUODOPA [Suspect]
     Active Substance: CARBIDOPA\LEVODOPA
     Indication: PARKINSON^S DISEASE
     Dosage: MD 3.8, CD 2.4, ED 0.7
     Route: 050
     Dates: start: 20181008
  8. DUODOPA [Suspect]
     Active Substance: CARBIDOPA\LEVODOPA
     Dosage: CD INCREASED?STRENGTH (CMP): 20 MG/ML 5 MG/ML
     Route: 050
     Dates: start: 2020
  9. DUODOPA [Suspect]
     Active Substance: CARBIDOPA\LEVODOPA
     Route: 050
  10. DUODOPA [Suspect]
     Active Substance: CARBIDOPA\LEVODOPA
     Dosage: MD: 3.8ML, CD: 2.4ML/H, ED: 0.7ML?REMAINS AT 16 HOURS
     Route: 050
  11. DUODOPA [Suspect]
     Active Substance: CARBIDOPA\LEVODOPA
     Dosage: CD 2.6 ML/H
     Route: 050
  12. OXAZEPAM. [Concomitant]
     Active Substance: OXAZEPAM
     Indication: PRODUCT USED FOR UNKNOWN INDICATION
  13. CLOZAPINE. [Concomitant]
     Active Substance: CLOZAPINE
     Indication: PRODUCT USED FOR UNKNOWN INDICATION
  14. MADOPAR DISPERSIBL [Concomitant]
     Active Substance: BENSERAZIDE HYDROCHLORIDE\LEVODOPA
     Indication: PARKINSON^S DISEASE
     Dosage: 125 MG
  15. ROPINIROLE. [Concomitant]
     Active Substance: ROPINIROLE
  16. FANTOMALT [Concomitant]
     Indication: NUTRITIONAL SUPPLEMENTATION
  17. MOVICOLON [Concomitant]
     Active Substance: POLYETHYLENE GLYCOL 3350\POTASSIUM CHLORIDE\SODIUM BICARBONATE\SODIUM CHLORIDE
     Indication: ABNORMAL FAECES
     Dosage: 2 SACHET
  18. LEVODOPA/CARBIDOPA [Concomitant]
     Active Substance: CARBIDOPA\LEVODOPA
     Indication: PARKINSON^S DISEASE
     Dosage: RETARD; 100/25 MG 1 DD 2, 30 MIN AFTER PUMP WAS DISCONNECTED 125 MG; 2 WERE TAKEN,
     Route: 048
  19. MACROGOL [Concomitant]
     Active Substance: POLYETHYLENE GLYCOLS
     Indication: ABNORMAL FAECES
  20. PROSOURCE TF [Concomitant]
     Indication: PRODUCT USED FOR UNKNOWN INDICATION
     Dosage: PROSOURCE LIQUID PROTEIN SUPPLEMENT?15G PROTEIN 100KCAL

REACTIONS (83)
  - Sensory disturbance [Not Recovered/Not Resolved]
  - Gastrointestinal motility disorder [Unknown]
  - Faecal volume decreased [Recovering/Resolving]
  - Head discomfort [Not Recovered/Not Resolved]
  - Gait disturbance [Not Recovered/Not Resolved]
  - Depressed mood [Not Recovered/Not Resolved]
  - Bradykinesia [Not Recovered/Not Resolved]
  - Vomiting [Not Recovered/Not Resolved]
  - Abdominal pain [Recovering/Resolving]
  - Stoma site erythema [Not Recovered/Not Resolved]
  - Unevaluable event [Unknown]
  - Abnormal faeces [Recovered/Resolved]
  - Tension [Not Recovered/Not Resolved]
  - Fear [Not Recovered/Not Resolved]
  - On and off phenomenon [Unknown]
  - Freezing phenomenon [Not Recovered/Not Resolved]
  - Therapeutic product effect delayed [Not Recovered/Not Resolved]
  - Stoma site discharge [Not Recovered/Not Resolved]
  - Agitation [Unknown]
  - Device difficult to use [Unknown]
  - Retching [Not Recovered/Not Resolved]
  - Pallor [Not Recovered/Not Resolved]
  - Balance disorder [Not Recovered/Not Resolved]
  - Fatigue [Not Recovered/Not Resolved]
  - Nausea [Recovered/Resolved]
  - Dyskinesia [Not Recovered/Not Resolved]
  - Therapeutic product effect variable [Not Recovered/Not Resolved]
  - Stoma site pain [Not Recovered/Not Resolved]
  - Delusion [Not Recovered/Not Resolved]
  - Unresponsive to stimuli [Not Recovered/Not Resolved]
  - Joint dislocation [Not Recovered/Not Resolved]
  - Fibroma [Not Recovered/Not Resolved]
  - Cognitive disorder [Not Recovered/Not Resolved]
  - Musculoskeletal stiffness [Not Recovered/Not Resolved]
  - Limb discomfort [Not Recovered/Not Resolved]
  - Memory impairment [Not Recovered/Not Resolved]
  - Gastrointestinal sounds abnormal [Not Recovered/Not Resolved]
  - Gait inability [Not Recovered/Not Resolved]
  - Abdominal distension [Not Recovered/Not Resolved]
  - Living in residential institution [Recovered/Resolved]
  - Dizziness [Not Recovered/Not Resolved]
  - Stoma site haemorrhage [Recovering/Resolving]
  - Drug ineffective [Recovering/Resolving]
  - Pain [Not Recovered/Not Resolved]
  - Delirium [Unknown]
  - Unevaluable event [Not Recovered/Not Resolved]
  - Mobility decreased [Not Recovered/Not Resolved]
  - Faecal volume decreased [Recovered/Resolved]
  - Medical device site discomfort [Unknown]
  - Irregular sleep phase [Recovered/Resolved]
  - Medical device site discolouration [Unknown]
  - Abnormal dreams [Recovered/Resolved]
  - Muscle spasms [Not Recovered/Not Resolved]
  - Decreased appetite [Recovered/Resolved]
  - Suspiciousness [Not Recovered/Not Resolved]
  - Muscle rigidity [Unknown]
  - Device physical property issue [Unknown]
  - Fall [Not Recovered/Not Resolved]
  - Medical device site injury [Not Recovered/Not Resolved]
  - Fear of disease [Not Recovered/Not Resolved]
  - Restlessness [Not Recovered/Not Resolved]
  - Malaise [Unknown]
  - Post procedural complication [Unknown]
  - Hyperhidrosis [Not Recovered/Not Resolved]
  - Anger [Unknown]
  - Restlessness [Unknown]
  - Parkinson^s disease [Not Recovered/Not Resolved]
  - Syncope [Not Recovered/Not Resolved]
  - Arthralgia [Unknown]
  - Affective disorder [Not Recovered/Not Resolved]
  - Gastrointestinal disorder [Not Recovered/Not Resolved]
  - Nausea [Recovered/Resolved]
  - Stoma site rash [Not Recovered/Not Resolved]
  - Confusional state [Not Recovered/Not Resolved]
  - Muscular weakness [Not Recovered/Not Resolved]
  - Stress [Not Recovered/Not Resolved]
  - Bowel movement irregularity [Unknown]
  - Dyspnoea [Not Recovered/Not Resolved]
  - Hallucination [Not Recovered/Not Resolved]
  - Stoma site irritation [Recovering/Resolving]
  - Anxiety [Not Recovered/Not Resolved]
  - Stoma site reaction [Unknown]
  - Middle insomnia [Unknown]

NARRATIVE: CASE EVENT DATE: 2020
